FAERS Safety Report 7520877-0 (Version None)
Quarter: 2011Q2

REPORT INFORMATION
  Report Type: 
  Country: None (occurrence: None)
  Receive Date: 20110603
  Receipt Date: 20101119
  Transmission Date: 20111010
  Serious: Yes (Death)
  Sender: FDA-Public Use
  Company Number: JP-BAYER-201015599BYL

PATIENT
  Age: 75 Year
  Sex: Female
  Weight: 45.1 kg

DRUGS (2)
  1. SUMIFERON [Suspect]
     Indication: PRODUCT USED FOR UNKNOWN INDICATION
     Dosage: 3 MIU (DAILY DOSE), TIW, SUBCUTANEOUS
     Route: 058
     Dates: start: 20100930, end: 20101104
  2. NEXAVAR [Suspect]
     Indication: RENAL CANCER METASTATIC
     Dosage: 800 MG (DAILY DOSE), , ORAL
     Route: 048
     Dates: start: 20101007, end: 20101104

REACTIONS (3)
  - RESPIRATORY FAILURE [None]
  - SHOCK HAEMORRHAGIC [None]
  - HAEMOPTYSIS [None]
